FAERS Safety Report 21011347 (Version 2)
Quarter: 2022Q2

REPORT INFORMATION
  Report Type: Spontaneous
  Country: US (occurrence: US)
  Receive Date: 20220627
  Receipt Date: 20220629
  Transmission Date: 20220721
  Serious: No
  Sender: FDA-Public Use
  Company Number: US-PFIZER INC-202200888871

PATIENT
  Age: 54 Year
  Sex: Female
  Weight: 62.14 kg

DRUGS (1)
  1. PAXLOVID [Suspect]
     Active Substance: NIRMATRELVIR\RITONAVIR
     Indication: COVID-19 treatment
     Dosage: UNK
     Dates: start: 20220622

REACTIONS (6)
  - Diarrhoea [Unknown]
  - Abdominal pain [Unknown]
  - Dehydration [Unknown]
  - Weight decreased [Unknown]
  - Colon injury [Unknown]
  - Therapeutic product effect incomplete [Unknown]

NARRATIVE: CASE EVENT DATE: 20220622
